FAERS Safety Report 9108675 (Version 1)
Quarter: 2013Q1

REPORT INFORMATION
  Report Type: Spontaneous
  Country: FR (occurrence: FR)
  Receive Date: 20130222
  Receipt Date: 20130222
  Transmission Date: 20140127
  Serious: Yes (Life-Threatening, Hospitalization)
  Sender: FDA-Public Use
  Company Number: FR-PFIZER INC-2013063869

PATIENT
  Age: 49 Year
  Sex: Male

DRUGS (9)
  1. CORDARONE [Suspect]
     Indication: ATRIAL FIBRILLATION
     Dosage: 2 DOSAGE FORM, 1X/DAY
     Route: 048
  2. PRADAXA [Interacting]
     Indication: PROPHYLAXIS
     Dosage: 75 MG, 2X/DAY
     Route: 048
     Dates: start: 201207, end: 20121011
  3. ALDACTONE [Concomitant]
     Indication: HYPERTENSION
     Dosage: UNK
  4. RAMIPRIL [Concomitant]
     Indication: HYPERTENSION
     Dosage: UNK
  5. JANUVIA [Concomitant]
     Indication: TYPE 2 DIABETES MELLITUS
     Dosage: UNK
  6. AMAREL [Concomitant]
     Indication: TYPE 2 DIABETES MELLITUS
     Dosage: UNK
  7. CARDENSIEL [Concomitant]
     Indication: CARDIAC FAILURE
     Dosage: UNK
  8. LASILIX [Concomitant]
     Indication: RENAL FAILURE
     Dosage: UNK
  9. KALEORID [Concomitant]
     Indication: HYPOKALAEMIA
     Dosage: UNK

REACTIONS (11)
  - Drug interaction [Unknown]
  - Prothrombin level decreased [Unknown]
  - Blood fibrinogen decreased [Unknown]
  - Rectal haemorrhage [Recovered/Resolved]
  - Haematemesis [Recovered/Resolved]
  - Haemoglobin decreased [Unknown]
  - Thrombocytopenia [Unknown]
  - Haematocrit decreased [Unknown]
  - Erythropenia [Unknown]
  - Hypotension [Recovered/Resolved]
  - Back pain [Recovered/Resolved]
